FAERS Safety Report 12913538 (Version 6)
Quarter: 2016Q4

REPORT INFORMATION
  Report Type: Spontaneous
  Country: US (occurrence: US)
  Receive Date: 20161104
  Receipt Date: 20161216
  Transmission Date: 20170207
  Serious: Yes (Hospitalization, Other)
  Sender: FDA-Public Use
  Company Number: US-CELGENEUS-USA-2016108307

PATIENT
  Sex: Female
  Weight: 59.47 kg

DRUGS (2)
  1. REVLIMID [Suspect]
     Active Substance: LENALIDOMIDE
     Indication: CHRONIC LYMPHOCYTIC LEUKAEMIA
     Dosage: 5MG
     Route: 048
     Dates: start: 201204
  2. REVLIMID [Suspect]
     Active Substance: LENALIDOMIDE
     Indication: LEUKAEMIA
     Dosage: 2.5MG
     Route: 048
     Dates: start: 201302

REACTIONS (7)
  - Urine flow decreased [Unknown]
  - Nephrolithiasis [Recovered/Resolved]
  - Back pain [Recovered/Resolved]
  - Arthralgia [Recovered/Resolved]
  - Urinary retention [Unknown]
  - Kidney infection [Recovered/Resolved]
  - Abscess bacterial [Recovered/Resolved]

NARRATIVE: CASE EVENT DATE: 2015
